FAERS Safety Report 23548888 (Version 2)
Quarter: 2024Q1

REPORT INFORMATION
  Report Type: Spontaneous
  Country: PT (occurrence: PT)
  Receive Date: 20240221
  Receipt Date: 20240223
  Transmission Date: 20240410
  Serious: Yes (Life-Threatening, Hospitalization, Other)
  Sender: FDA-Public Use
  Company Number: PT-LABALTER-202400486

PATIENT
  Age: 19 Year
  Sex: Male

DRUGS (3)
  1. LORAZEPAM [Suspect]
     Active Substance: LORAZEPAM
     Dosage: INGESTED NUMEROUS PILLS
     Route: 048
  2. PAROXETINE [Suspect]
     Active Substance: PAROXETINE
     Dosage: INGESTED NUMEROUS PILLS
     Route: 048
  3. TOPIRAMATE [Suspect]
     Active Substance: TOPIRAMATE
     Indication: Migraine prophylaxis
     Dosage: INGESTED NUMEROUS PILLS
     Route: 048

REACTIONS (3)
  - Intentional overdose [Recovered/Resolved]
  - Acidosis hyperchloraemic [Recovered/Resolved]
  - Suicide attempt [Recovered/Resolved]
